FAERS Safety Report 10065586 (Version 1)
Quarter: 2014Q2

REPORT INFORMATION
  Report Type: Spontaneous
  Country: US (occurrence: US)
  Receive Date: 20140408
  Receipt Date: 20140408
  Transmission Date: 20141212
  Serious: No
  Sender: FDA-Public Use
  Company Number: US-SANOFI-AVENTIS-2013SA078844

PATIENT
  Age: 77 Year
  Sex: Female

DRUGS (1)
  1. ELITEK [Suspect]
     Indication: BLOOD URIC ACID INCREASED
     Dosage: DOSE- 6 MG IN 50 ML NS
     Route: 065
     Dates: start: 20130727, end: 20130727

REACTIONS (6)
  - Flushing [Recovered/Resolved]
  - Oxygen saturation decreased [Recovered/Resolved]
  - Asthenia [Recovered/Resolved]
  - Dyspnoea [Recovered/Resolved]
  - Dyspepsia [Recovered/Resolved]
  - Drug ineffective [Unknown]
